FAERS Safety Report 6026993-7 (Version None)
Quarter: 2009Q1

REPORT INFORMATION
  Report Type: 
  Country: None (occurrence: None)
  Receive Date: 20090105
  Receipt Date: 20081223
  Transmission Date: 20090719
  Serious: Yes (Hospitalization)
  Sender: FDA-Public Use
  Company Number: GB-PFIZER INC-2008094922

PATIENT

DRUGS (5)
  1. SUNITINIB MALATE [Suspect]
     Dosage: 50 MG, UNK
     Route: 048
     Dates: start: 20060227, end: 20081106
  2. SUNITINIB MALATE [Suspect]
     Dosage: 50 MG, UNK
     Route: 048
     Dates: start: 20081205
  3. GAVISCON [Concomitant]
     Route: 048
     Dates: start: 20080221
  4. BENDROFLUAZIDE [Concomitant]
     Route: 048
     Dates: start: 20060525, end: 20081105
  5. AMLODIPINE [Concomitant]
     Route: 048
     Dates: start: 20060914, end: 20081105

REACTIONS (1)
  - ACUTE MYOCARDIAL INFARCTION [None]
